FAERS Safety Report 12300980 (Version 5)
Quarter: 2016Q2

REPORT INFORMATION
  Report Type: Spontaneous
  Country: JP (occurrence: JP)
  Receive Date: 20160425
  Receipt Date: 20160608
  Transmission Date: 20160815
  Serious: Yes (Hospitalization, Other)
  Sender: FDA-Public Use
  Company Number: JP-ABBVIE-16P-087-1608497-00

PATIENT
  Age: 73 Year
  Sex: Female
  Weight: 55.7 kg

DRUGS (13)
  1. EDOXABAN TOSILATE HYDRATE [Concomitant]
     Indication: PORTAL VEIN THROMBOSIS
     Route: 048
     Dates: start: 20151228
  2. STRONGER NEO-MINOPHAGEN C, P [Concomitant]
     Indication: HEPATITIS C
  3. VIEKIRAX [Suspect]
     Active Substance: OMBITASVIR\PARITAPREVIR\RITONAVIR
     Indication: HEPATITIS C
     Route: 048
     Dates: start: 20160412, end: 20160416
  4. ESOMEPRAZOLE MAGNESIUM HYDRATE [Concomitant]
     Indication: GASTROOESOPHAGEAL REFLUX DISEASE
     Route: 048
  5. ISOSORBIDE DINITRATE. [Concomitant]
     Active Substance: ISOSORBIDE DINITRATE
     Indication: HYPERTENSION
     Route: 048
  6. FUROSEMIDE. [Concomitant]
     Active Substance: FUROSEMIDE
     Indication: CHRONIC KIDNEY DISEASE
     Route: 048
  7. STRONGER NEO-MINOPHAGEN C, P [Concomitant]
     Indication: HEPATIC CIRRHOSIS
     Route: 042
  8. SPIRONOLACTONE. [Concomitant]
     Active Substance: SPIRONOLACTONE
     Indication: HEPATIC CIRRHOSIS
  9. VIEKIRAX [Suspect]
     Active Substance: OMBITASVIR\PARITAPREVIR\RITONAVIR
     Indication: HEPATIC CIRRHOSIS
  10. SPIRONOLACTONE. [Concomitant]
     Active Substance: SPIRONOLACTONE
     Indication: HEPATITIS C
     Route: 048
  11. NIFEDIPINE. [Concomitant]
     Active Substance: NIFEDIPINE
     Indication: AORTIC ANEURYSM
     Route: 048
  12. URSODEOXYCHOLIC ACID [Concomitant]
     Active Substance: URSODIOL
     Indication: HEPATIC CIRRHOSIS
     Route: 048
  13. URSODEOXYCHOLIC ACID [Concomitant]
     Active Substance: URSODIOL
     Indication: HEPATITIS C

REACTIONS (4)
  - Decreased appetite [Recovered/Resolved]
  - Chronic kidney disease [Recovered/Resolved]
  - Abdominal discomfort [Recovered/Resolved]
  - Aortic aneurysm [Recovered/Resolved]

NARRATIVE: CASE EVENT DATE: 20160413
